FAERS Safety Report 11695563 (Version 10)
Quarter: 2018Q1

REPORT INFORMATION
  Report Type: Spontaneous
  Country: US (occurrence: US)
  Receive Date: 20151104
  Receipt Date: 20180124
  Transmission Date: 20180508
  Serious: Yes (Other)
  Sender: FDA-Public Use
  Company Number: PHEH2015US022024

PATIENT
  Age: 27 Year
  Sex: Female
  Weight: 54.42 kg

DRUGS (4)
  1. ZOFRAN [Suspect]
     Active Substance: ONDANSETRON HYDROCHLORIDE
     Indication: PRODUCT USED FOR UNKNOWN INDICATION
     Dosage: 4 MG, QD
     Route: 042
     Dates: start: 20140130, end: 20140130
  2. ONDANSETRON [Suspect]
     Active Substance: ONDANSETRON
     Indication: VOMITING IN PREGNANCY
     Dosage: 4 MG, PRN
     Route: 048
     Dates: start: 20140402
  3. ZOFRAN [Suspect]
     Active Substance: ONDANSETRON HYDROCHLORIDE
     Indication: VOMITING IN PREGNANCY
     Dosage: 4 MG, UNK
     Route: 048
  4. ONDANSETRON [Suspect]
     Active Substance: ONDANSETRON
     Indication: PRODUCT USED FOR UNKNOWN INDICATION
     Route: 048

REACTIONS (17)
  - Anxiety [Unknown]
  - Product use in unapproved indication [Unknown]
  - Splenomegaly [Unknown]
  - Abdominal pain [Unknown]
  - Ear pain [Unknown]
  - Upper respiratory tract infection [Unknown]
  - Vaginal haemorrhage [Unknown]
  - Limb injury [Unknown]
  - Pollakiuria [Unknown]
  - Emotional distress [Unknown]
  - Premature labour [Unknown]
  - Maternal exposure during pregnancy [Unknown]
  - Anhedonia [Unknown]
  - Pain [Unknown]
  - Premature delivery [Unknown]
  - Pharyngitis [Unknown]
  - Migraine [Unknown]

NARRATIVE: CASE EVENT DATE: 20141031
